FAERS Safety Report 16873590 (Version 2)
Quarter: 2019Q4

REPORT INFORMATION
  Report Type: Other
  Country: PL (occurrence: PL)
  Receive Date: 20191001
  Receipt Date: 20191219
  Transmission Date: 20200122
  Serious: Yes (Other)
  Sender: FDA-Public Use
  Company Number: PL-ASPEN-GLO2019PL010087

PATIENT
  Age: 7 Year
  Sex: Male

DRUGS (6)
  1. TIOGUANINE [Suspect]
     Active Substance: THIOGUANINE ANHYDROUS
     Indication: BRAIN NEOPLASM
     Dosage: UNK
     Route: 065
  2. CARBOPLATIN. [Suspect]
     Active Substance: CARBOPLATIN
     Indication: BRAIN NEOPLASM
     Dosage: UNK
     Route: 065
  3. PROCARBAZINE [Suspect]
     Active Substance: PROCARBAZINE
     Indication: BRAIN NEOPLASM
     Dosage: UNK
     Route: 065
  4. LOMUSTINE. [Suspect]
     Active Substance: LOMUSTINE
     Indication: BRAIN NEOPLASM
     Dosage: UNK
     Route: 065
  5. VINBLASTIN [Suspect]
     Active Substance: VINBLASTINE
     Indication: BRAIN NEOPLASM
     Dosage: UNK
     Route: 065
  6. VINCRISTINE [Suspect]
     Active Substance: VINCRISTINE
     Indication: BRAIN NEOPLASM
     Dosage: UNK
     Route: 065

REACTIONS (5)
  - Brain neoplasm [Unknown]
  - Off label use [Unknown]
  - Malignant neoplasm progression [Unknown]
  - Bone marrow failure [Unknown]
  - Infection [Unknown]
